FAERS Safety Report 4873005-4 (Version None)
Quarter: 2006Q1

REPORT INFORMATION
  Report Type: 
  Country: None (occurrence: None)
  Receive Date: 20060105
  Receipt Date: 20051223
  Transmission Date: 20060701
  Serious: Yes (Life-Threatening, Hospitalization, Disabling)
  Sender: FDA-Public Use
  Company Number: US-KINGPHARMUSA00001-K200501636

PATIENT
  Age: 55 Year
  Sex: Male

DRUGS (5)
  1. ALTACE [Suspect]
     Dosage: 2.5 MG, QD
     Route: 048
     Dates: start: 20031201, end: 20051003
  2. NIFEDIPINE [Concomitant]
     Dosage: 40 MG, QD
  3. ALLOPURINOL [Concomitant]
     Dosage: 300 MG, QD
     Route: 048
     Dates: start: 20030415
  4. CO-DYDRAMOL [Concomitant]
     Dosage: 4 UNK, QD
     Route: 048
     Dates: start: 19960414
  5. INDAPAMIDE [Concomitant]
     Dosage: 1.5 MG, QD
     Route: 048

REACTIONS (2)
  - ANAPHYLACTIC SHOCK [None]
  - ANGIONEUROTIC OEDEMA [None]
